FAERS Safety Report 7982297-4 (Version None)
Quarter: 2011Q4

REPORT INFORMATION
  Report Type: 
  Country: None (occurrence: None)
  Receive Date: 20111215
  Receipt Date: 20111130
  Transmission Date: 20120403
  Serious: Yes (Other)
  Sender: FDA-Public Use
  Company Number: FR-UCBSA-046909

PATIENT
  Age: 75 Year
  Sex: Male

DRUGS (1)
  1. LEVETIRACETAM [Suspect]
     Indication: STATUS EPILEPTICUS
     Route: 042
     Dates: start: 20100225, end: 20100225

REACTIONS (1)
  - CIRCULATORY COLLAPSE [None]
